FAERS Safety Report 21762738 (Version 1)
Quarter: 2022Q4

REPORT INFORMATION
  Report Type: Spontaneous
  Country: FR (occurrence: FR)
  Receive Date: 20221221
  Receipt Date: 20221221
  Transmission Date: 20230113
  Serious: Yes (Death)
  Sender: FDA-Public Use
  Company Number: FR-JNJFOC-20221220778

PATIENT
  Sex: Male

DRUGS (1)
  1. TECLISTAMAB [Suspect]
     Active Substance: TECLISTAMAB
     Indication: Plasma cell myeloma
     Dosage: MAINTENANCE THERAPY; DOSE ESCALATION BETWEEN 14-NOV-2022 AND 30-NOV-2022
     Route: 065

REACTIONS (1)
  - Death [Fatal]
